FAERS Safety Report 4910647-1 (Version None)
Quarter: 2006Q1

REPORT INFORMATION
  Report Type: 
  Country: None (occurrence: None)
  Receive Date: 20060210
  Receipt Date: 20060210
  Transmission Date: 20060701
  Serious: Yes (Life-Threatening, Hospitalization)
  Sender: FDA-Public Use
  Company Number: None

PATIENT
  Age: 66 Year
  Sex: Female
  Weight: 102.1 kg

DRUGS (1)
  1. DOXYCYCLINE [Suspect]

REACTIONS (2)
  - DYSARTHRIA [None]
  - HEADACHE [None]
